FAERS Safety Report 21535783 (Version 3)
Quarter: 2024Q2

REPORT INFORMATION
  Report Type: Spontaneous
  Country: AU (occurrence: AU)
  Receive Date: 20221101
  Receipt Date: 20240521
  Transmission Date: 20240716
  Serious: Yes (Other)
  Sender: FDA-Public Use
  Company Number: AU-009507513-2210AUS009837

PATIENT
  Age: 49 Year
  Sex: Male

DRUGS (1)
  1. PEMBROLIZUMAB [Suspect]
     Active Substance: PEMBROLIZUMAB
     Indication: Metastatic malignant melanoma
     Dosage: UNK

REACTIONS (3)
  - Immune-mediated hepatic disorder [Unknown]
  - Immune-mediated hypophysitis [Unknown]
  - Rheumatic disorder [Recovering/Resolving]
